FAERS Safety Report 22058730 (Version 3)
Quarter: 2023Q2

REPORT INFORMATION
  Report Type: Report from Study
  Country: MX (occurrence: MX)
  Receive Date: 20230303
  Receipt Date: 20230623
  Transmission Date: 20230722
  Serious: Yes (Hospitalization, Other)
  Sender: FDA-Public Use
  Company Number: MX-002147023-NVSC2023MX047715

PATIENT
  Sex: Female
  Weight: 37.5 kg

DRUGS (10)
  1. CYCLOSPORINE [Suspect]
     Active Substance: CYCLOSPORINE
     Indication: Systemic lupus erythematosus
     Dosage: UNK
     Route: 048
     Dates: start: 202208, end: 202209
  2. CYCLOSPORINE [Suspect]
     Active Substance: CYCLOSPORINE
     Indication: Antiphospholipid syndrome
     Dosage: UNK (IN THE BEGINNING OF 2023)
     Route: 065
  3. CYCLOSPORINE [Suspect]
     Active Substance: CYCLOSPORINE
     Dosage: 5 ML, BID (EVERY 12 HOURS)
     Route: 048
     Dates: start: 202208, end: 202211
  4. CYCLOSPORINE [Suspect]
     Active Substance: CYCLOSPORINE
     Dosage: UNK UNK, BID (1 OF 100MG)
     Route: 048
     Dates: start: 202211
  5. CYCLOSPORINE [Suspect]
     Active Substance: CYCLOSPORINE
     Dosage: 1 DOSAGE FORM, QD (1000 MG) (IN THE END OF AUG 202 OR SEP 2022)
     Route: 048
     Dates: start: 2022
  6. PREDNISONE [Concomitant]
     Active Substance: PREDNISONE
     Indication: Arthralgia
     Dosage: 1.5 MG, QD
     Route: 048
     Dates: start: 202208
  7. PREDNISONE [Concomitant]
     Active Substance: PREDNISONE
     Indication: Antiinflammatory therapy
  8. HYDROXYCHLOROQUINE [Concomitant]
     Active Substance: HYDROXYCHLOROQUINE
     Indication: Systemic lupus erythematosus
     Dosage: 1 DOSAGE FORM, QD
     Route: 048
     Dates: start: 202208
  9. ACENOCOUMAROL [Concomitant]
     Active Substance: ACENOCOUMAROL
     Indication: Anticoagulant therapy
     Dosage: UNK (? ON MONDAY AND FRIDAY AND ? ON TUESDAY, WEDNESDAY, THURSDAY, SATURDAY AND SUNDAY)
     Route: 048
     Dates: start: 202208
  10. CHOLECALCIFEROL [Concomitant]
     Active Substance: CHOLECALCIFEROL
     Indication: Vitamin supplementation
     Dosage: 1 DOSAGE FORM (TUESDAY AND THURSDAYS)
     Route: 048
     Dates: start: 202208

REACTIONS (17)
  - Cerebral thrombosis [Unknown]
  - Seizure [Recovering/Resolving]
  - Muscular weakness [Recovering/Resolving]
  - Cerebellar syndrome [Unknown]
  - Influenza [Recovered/Resolved]
  - Oral herpes [Unknown]
  - Stress [Unknown]
  - Alopecia [Recovering/Resolving]
  - Arthritis [Recovering/Resolving]
  - Hypertension [Recovering/Resolving]
  - Headache [Recovered/Resolved]
  - Speech disorder [Recovering/Resolving]
  - Asthenia [Recovering/Resolving]
  - Dyskinesia [Recovering/Resolving]
  - Oral discomfort [Recovered/Resolved]
  - Product use in unapproved indication [Unknown]
  - Off label use [Unknown]

NARRATIVE: CASE EVENT DATE: 20220101
